FAERS Safety Report 10450110 (Version 1)
Quarter: 2014Q3

REPORT INFORMATION
  Report Type: Spontaneous
  Country: CH (occurrence: CH)
  Receive Date: 20140912
  Receipt Date: 20140912
  Transmission Date: 20150326
  Serious: Yes (Other)
  Sender: FDA-Public Use
  Company Number: CH-LUNDBECK-DKLU1103490

PATIENT
  Age: 7 Month
  Sex: Female

DRUGS (1)
  1. SABRIL [Suspect]
     Active Substance: VIGABATRIN
     Indication: CONVULSION
     Route: 048
     Dates: start: 20140622, end: 20140622

REACTIONS (4)
  - Bradypnoea [Unknown]
  - Prescribed overdose [Unknown]
  - Bradycardia [Unknown]
  - Somnolence [Unknown]

NARRATIVE: CASE EVENT DATE: 20140622
